FAERS Safety Report 14944050 (Version 1)
Quarter: 2018Q2

REPORT INFORMATION
  Report Type: Spontaneous
  Country: CN (occurrence: CN)
  Receive Date: 20180528
  Receipt Date: 20180528
  Transmission Date: 20180711
  Serious: Yes (Other)
  Sender: FDA-Public Use
  Company Number: CN-009507513-1805CHN006846

PATIENT
  Age: 11 Year
  Sex: Male

DRUGS (2)
  1. TEMOZOLOMIDE. [Suspect]
     Active Substance: TEMOZOLOMIDE
     Indication: GLIOBLASTOMA
     Dosage: 75 MG/M2, QD
     Route: 048
     Dates: start: 201308, end: 2013
  2. TEMOZOLOMIDE. [Suspect]
     Active Substance: TEMOZOLOMIDE
     Dosage: 150 MG/M2, QD FOR 5 DAYS EVERY 28 DAY COURSE
     Route: 048
     Dates: start: 201309, end: 201401

REACTIONS (1)
  - B-cell type acute leukaemia [Recovering/Resolving]

NARRATIVE: CASE EVENT DATE: 201407
